FAERS Safety Report 7226486-5 (Version None)
Quarter: 2011Q1

REPORT INFORMATION
  Report Type: 
  Country: None (occurrence: None)
  Receive Date: 20110114
  Receipt Date: 20110107
  Transmission Date: 20110831
  Serious: Yes (Other)
  Sender: FDA-Public Use
  Company Number: GB-JNJFOC-20110101927

PATIENT
  Age: 45 Year
  Sex: Female
  Weight: 50 kg

DRUGS (10)
  1. DIETHYLAMINE SALICYLATE [Concomitant]
     Route: 065
  2. DICLOFENAC SODIUM [Concomitant]
     Route: 065
  3. ERGOCALCIFEROL [Concomitant]
     Route: 065
  4. ACETAMINOPHEN W/ CODEINE [Suspect]
     Indication: PRODUCT USED FOR UNKNOWN INDICATION
     Route: 065
  5. DIAZEPAM [Concomitant]
     Route: 065
  6. OXYTETRACYCLINE [Concomitant]
     Route: 065
  7. TRAMADOL [Concomitant]
  8. CLINDAMYCIN [Concomitant]
     Route: 065
  9. FERROUS GLUCONATE [Concomitant]
     Route: 065
  10. ZOPICLONE [Concomitant]
     Route: 065

REACTIONS (1)
  - CIRCULATORY COLLAPSE [None]
